FAERS Safety Report 20780738 (Version 1)
Quarter: 2022Q2

REPORT INFORMATION
  Report Type: Spontaneous
  Country: US (occurrence: US)
  Receive Date: 20220504
  Receipt Date: 20220504
  Transmission Date: 20220721
  Serious: No
  Sender: FDA-Public Use
  Company Number: US-AMGEN-USASP2022071159

PATIENT
  Age: 65 Year
  Sex: Female
  Weight: 43.27 kg

DRUGS (1)
  1. LUMAKRAS [Suspect]
     Active Substance: SOTORASIB
     Indication: K-ras gene mutation
     Dosage: 120 MILLIGRAM
     Route: 048
     Dates: start: 20210816, end: 20210927

REACTIONS (1)
  - Diarrhoea [Unknown]
